FAERS Safety Report 5514299-1 (Version None)
Quarter: 2007Q4

REPORT INFORMATION
  Report Type: 
  Country: None (occurrence: None)
  Receive Date: 20071113
  Receipt Date: 20070405
  Transmission Date: 20080405
  Serious: No
  Sender: FDA-Public Use
  Company Number: A0646066A

PATIENT
  Age: 56 Year
  Sex: Male

DRUGS (4)
  1. COREG [Suspect]
     Indication: DRUG USE FOR UNKNOWN INDICATION
     Dosage: 12.5MG PER DAY
     Route: 048
  2. PAXIL [Suspect]
     Dosage: 30MG PER DAY
     Route: 048
  3. ZETIA [Concomitant]
  4. ZOCOR [Concomitant]

REACTIONS (2)
  - AGITATION [None]
  - DRUG INEFFECTIVE [None]
